FAERS Safety Report 14175836 (Version 1)
Quarter: 2017Q4

REPORT INFORMATION
  Report Type: Spontaneous
  Country: IN (occurrence: IN)
  Receive Date: 20171109
  Receipt Date: 20171109
  Transmission Date: 20180321
  Serious: Yes (Other)
  Sender: FDA-Public Use
  Company Number: IN-MYLANLABS-2017M1069852

PATIENT
  Age: 22 Year
  Sex: Male

DRUGS (1)
  1. BETAMETHASONE. [Suspect]
     Active Substance: BETAMETHASONE
     Indication: ORAL SUBMUCOSAL FIBROSIS
     Dosage: 4MG/ML TWICE WEEKLY FOR 2 WEEKS
     Route: 026

REACTIONS (2)
  - Injection site abscess sterile [Recovered/Resolved]
  - Abscess oral [Recovered/Resolved]
